FAERS Safety Report 4401261-5 (Version None)
Quarter: 2004Q3

REPORT INFORMATION
  Report Type: 
  Country: None (occurrence: None)
  Receive Date: 20040907
  Receipt Date: 20040123
  Transmission Date: 20050211
  Serious: No
  Sender: FDA-Public Use
  Company Number: US-BRISTOL-MYERS SQUIBB COMPANY-12486940

PATIENT
  Age: 47 Year
  Sex: Male
  Weight: 86 kg

DRUGS (1)
  1. COUMADIN [Suspect]
     Indication: EMBOLISM
     Route: 048
     Dates: start: 20031107

REACTIONS (1)
  - INTERNATIONAL NORMALISED RATIO ABNORMAL [None]
